FAERS Safety Report 4987720-5 (Version None)
Quarter: 2006Q2

REPORT INFORMATION
  Report Type: 
  Country: None (occurrence: None)
  Receive Date: 20060424
  Receipt Date: 20060322
  Transmission Date: 20061013
  Serious: Yes (Hospitalization)
  Sender: FDA-Public Use
  Company Number: AU200603006170

PATIENT
  Age: 23 Year
  Sex: Male

DRUGS (2)
  1. ZYPREXA [Suspect]
     Indication: SCHIZOPHRENIA, PARANOID TYPE
     Dosage: 10 MG, 2/D
     Dates: start: 19990101, end: 20030101
  2. SERTRALINE [Concomitant]

REACTIONS (16)
  - ANXIETY [None]
  - DEPRESSION [None]
  - DIABETES MELLITUS INSULIN-DEPENDENT [None]
  - DIABETIC KETOACIDOSIS [None]
  - DIFFICULTY IN WALKING [None]
  - EXERCISE TOLERANCE DECREASED [None]
  - EYE INFECTION [None]
  - FATIGUE [None]
  - HYPERHIDROSIS [None]
  - INFECTION IN AN IMMUNOCOMPROMISED HOST [None]
  - INSOMNIA [None]
  - PARAESTHESIA [None]
  - PSYCHIATRIC SYMPTOM [None]
  - RENAL IMPAIRMENT [None]
  - SCHIZOPHRENIFORM DISORDER [None]
  - VOMITING [None]
